FAERS Safety Report 10547747 (Version 1)
Quarter: 2014Q4

REPORT INFORMATION
  Report Type: Spontaneous
  Country: US (occurrence: None)
  Receive Date: 20141024
  Receipt Date: 20141024
  Transmission Date: 20150529
  Serious: Yes (Other)
  Sender: FDA-Public Use
  Company Number: None

PATIENT
  Age: 16 Year
  Sex: Female
  Weight: 45.36 kg

DRUGS (1)
  1. NEUTROGENA ON-THE-SPOT ACNE TREATMENT VANISHING FORMULA [Suspect]
     Active Substance: BENZOYL PEROXIDE
     Indication: ACNE
     Dates: start: 20141024, end: 20141024

REACTIONS (3)
  - Skin swelling [None]
  - Burning sensation [None]
  - Skin warm [None]

NARRATIVE: CASE EVENT DATE: 20141024
